FAERS Safety Report 21892371 (Version 1)
Quarter: 2023Q1

REPORT INFORMATION
  Report Type: Spontaneous
  Country: CN (occurrence: None)
  Receive Date: 20230120
  Receipt Date: 20230120
  Transmission Date: 20230418
  Serious: Yes (Other)
  Sender: FDA-Public Use
  Company Number: 2023A013751

PATIENT
  Age: 55 Year
  Sex: Male

DRUGS (7)
  1. GEFITINIB [Suspect]
     Active Substance: GEFITINIB
     Indication: Lung adenocarcinoma stage IV
     Route: 048
     Dates: start: 20181203
  2. GEFITINIB [Suspect]
     Active Substance: GEFITINIB
     Indication: EGFR gene mutation
     Route: 048
     Dates: start: 20181203
  3. GEFITINIB [Suspect]
     Active Substance: GEFITINIB
     Indication: Lung adenocarcinoma stage IV
     Route: 048
     Dates: start: 20200303
  4. GEFITINIB [Suspect]
     Active Substance: GEFITINIB
     Indication: EGFR gene mutation
     Route: 048
     Dates: start: 20200303
  5. PEMETREXED/CARBOPLATIN [Concomitant]
     Dosage: 6 CYCLES
     Dates: start: 201901, end: 201906
  6. PEMETREXED [Concomitant]
     Active Substance: PEMETREXED
     Dosage: 5 CYCLES
     Dates: start: 201907, end: 201911
  7. ERLOTINIB [Concomitant]
     Active Substance: ERLOTINIB
     Dates: start: 20200320

REACTIONS (4)
  - Drug resistance [Unknown]
  - Metastases to central nervous system [Recovered/Resolved]
  - Malignant neoplasm progression [Unknown]
  - Drug ineffective [Unknown]

NARRATIVE: CASE EVENT DATE: 20161203
